FAERS Safety Report 20837630 (Version 1)
Quarter: 2022Q2

REPORT INFORMATION
  Report Type: Report from Study
  Country: US (occurrence: US)
  Receive Date: 20220517
  Receipt Date: 20220517
  Transmission Date: 20220720
  Serious: No
  Sender: FDA-Public Use
  Company Number: US-BRISTOL-MYERS SQUIBB COMPANY-2022-033137

PATIENT
  Age: 65 Year
  Sex: Male

DRUGS (2)
  1. ZEPOSIA [Suspect]
     Active Substance: OZANIMOD HYDROCHLORIDE
     Indication: Colitis ulcerative
     Dosage: DOSE: 0.23 MILLIGRAM, FREQ: DAILY
     Route: 048
     Dates: start: 20220315
  2. ZEPOSIA [Suspect]
     Active Substance: OZANIMOD HYDROCHLORIDE
     Dosage: DOSE: 0.92 MILLIGRAM, FREQ: DAILY
     Route: 048
     Dates: start: 20220315, end: 20220428

REACTIONS (5)
  - Hypersensitivity [Unknown]
  - Eczema [Unknown]
  - Rash [Unknown]
  - Blister [Unknown]
  - Insomnia [Unknown]
